FAERS Safety Report 8515571-3 (Version None)
Quarter: 2012Q3

REPORT INFORMATION
  Report Type: 
  Country: None (occurrence: None)
  Receive Date: 20120717
  Receipt Date: 20120710
  Transmission Date: 20120928
  Serious: Yes (Hospitalization, Other)
  Sender: FDA-Public Use
  Company Number: PHHY2011CA29778

PATIENT
  Sex: Male

DRUGS (2)
  1. SANDOSTATIN LAR [Suspect]
     Indication: NEUROENDOCRINE TUMOUR
     Dosage: 30 MG EVERY 4 WEEKS
     Route: 030
     Dates: start: 20110312
  2. AFINITOR [Suspect]
     Indication: NEUROENDOCRINE TUMOUR
     Dosage: 10 MG, QD
     Route: 048
     Dates: start: 20110602, end: 20110916

REACTIONS (5)
  - NEOPLASM MALIGNANT [None]
  - NEOPLASM PROGRESSION [None]
  - METASTASES TO LARGE INTESTINE [None]
  - RENAL FUNCTION TEST ABNORMAL [None]
  - MALAISE [None]
